FAERS Safety Report 4509125-3 (Version None)
Quarter: 2004Q4

REPORT INFORMATION
  Report Type: 
  Country: None (occurrence: None)
  Receive Date: 20041025
  Receipt Date: 20030828
  Transmission Date: 20050328
  Serious: Yes (Hospitalization)
  Sender: FDA-Public Use
  Company Number: NSADSS2003022568

PATIENT
  Age: 66 Year
  Sex: Female
  Weight: 61.6892 kg

DRUGS (8)
  1. REMICADE [Suspect]
     Indication: CROHN'S DISEASE
     Dosage: 1 IN 1 AS NECESSARY, INTRAVENOUS DRIP
     Route: 041
     Dates: start: 20010101, end: 20010101
  2. REMICADE [Suspect]
     Indication: CROHN'S DISEASE
     Dosage: 1 IN 1 AS NECESSARY, INTRAVENOUS DRIP
     Route: 041
     Dates: start: 20030201, end: 20030201
  3. REMICADE [Suspect]
     Indication: CROHN'S DISEASE
     Dosage: 1 IN 1 AS NECESSARY, INTRAVENOUS DRIP
     Route: 041
     Dates: start: 20030401, end: 20030401
  4. TYLENOL [Concomitant]
  5. BENADRYL [Concomitant]
  6. MERCAPTOPURINE [Concomitant]
  7. ENTOCORT (BUDENOSIDE) [Concomitant]
  8. PREVACID [Concomitant]

REACTIONS (2)
  - HYPOTENSION [None]
  - SERUM SICKNESS [None]
